FAERS Safety Report 8300768-8 (Version None)
Quarter: 2012Q2

REPORT INFORMATION
  Report Type: 
  Country: None (occurrence: None)
  Receive Date: 20120420
  Receipt Date: 20120417
  Transmission Date: 20120825
  Serious: Yes (Death)
  Sender: FDA-Public Use
  Company Number: PHHY2012IT032410

PATIENT
  Age: 40 Year
  Sex: Male

DRUGS (5)
  1. STEROIDS NOS [Concomitant]
  2. PROCARBAZINE HYDROCHLORIDE [Concomitant]
  3. LOMUSTINE [Concomitant]
  4. VINCRISTINE [Concomitant]
  5. PAMIDRONATE DISODIUM [Suspect]

REACTIONS (2)
  - GENERAL PHYSICAL HEALTH DETERIORATION [None]
  - METASTASES TO BONE MARROW [None]
